FAERS Safety Report 7596001-5 (Version None)
Quarter: 2011Q3

REPORT INFORMATION
  Report Type: 
  Country: None (occurrence: None)
  Receive Date: 20110707
  Receipt Date: 20110629
  Transmission Date: 20111222
  Serious: Yes (Other)
  Sender: FDA-Public Use
  Company Number: PHHY2011US58730

PATIENT
  Sex: Female
  Weight: 76.644 kg

DRUGS (25)
  1. NEXIUM [Concomitant]
     Dosage: 40 MG, UNK
  2. MELOXICAM [Concomitant]
     Dosage: 7.5 MG, UNK
  3. BUPROPION HCL [Concomitant]
     Dosage: 75 MG, UNK
  4. PROVIGIL [Concomitant]
     Dosage: 100 MG, UNK
  5. HYDROCODONE BITARTRATE AND ACETAMINOPHEN [Concomitant]
     Dosage: 10-325 MG
  6. VITAMIN D [Concomitant]
     Dosage: UNK
  7. ALBUTEROL SULFATE AUTOHALER [Concomitant]
     Dosage: 90 UG, UNK
  8. GABAPENTIN [Concomitant]
     Dosage: 100 MG, UNK
  9. FAMPRIDINE [Concomitant]
     Dosage: 10 MG, UNK
  10. LEVOTHYROXINE SODIUM [Concomitant]
     Dosage: 50 UG, UNK
  11. TRIAMTERENE AND HYDROCHLOROTHIAZIDE [Concomitant]
     Dosage: 25-50 MG
  12. STOOL SOFTENER [Concomitant]
     Dosage: 100-30 (UNIT UNKNOWN)
  13. ASCORBIC ACID [Concomitant]
     Dosage: 500 MG, UNK
  14. BIOTIN [Concomitant]
     Dosage: 5000 UNK, UNK
  15. GILENYA [Suspect]
     Dosage: 0.5 MG, QD
     Route: 048
  16. ALPRAZOLAM [Concomitant]
     Dosage: 1 MG, UNK
  17. ESTRADIOL [Concomitant]
     Dosage: 0.5 MG, UNK
  18. CYMBALTA [Concomitant]
     Dosage: 60 MG, UNK
  19. CALCIUM CARBONATE [Concomitant]
     Dosage: UNK
  20. MULTIVITAMIN ^LAPPE^ [Concomitant]
     Dosage: UNK
  21. CARISOPRODOL [Concomitant]
     Dosage: 350 MG, UNK
  22. FERROUS SULFATE TAB [Concomitant]
     Dosage: 50 MG, UNK
  23. GLUCOSAMINE /CHONDROITIN /MSM [Concomitant]
     Dosage: UNK
  24. TRIAMCINOLONE [Concomitant]
     Dosage: 0.1 %, UNK
  25. CYCLOBENZAPRINE [Concomitant]
     Dosage: 30 MG, UNK

REACTIONS (2)
  - CANDIDIASIS [None]
  - NAUSEA [None]
